FAERS Safety Report 20603354 (Version 2)
Quarter: 2022Q1

REPORT INFORMATION
  Report Type: Spontaneous
  Country: CN (occurrence: CN)
  Receive Date: 20220316
  Receipt Date: 20220321
  Transmission Date: 20220423
  Serious: Yes (Hospitalization)
  Sender: FDA-Public Use
  Company Number: CN-BAXTER-2022BAX005606

PATIENT
  Age: 65 Year
  Sex: Female
  Weight: 57.4 kg

DRUGS (12)
  1. CYCLOPHOSPHAMIDE [Suspect]
     Active Substance: CYCLOPHOSPHAMIDE
     Indication: B-cell lymphoma
     Dosage: CYCLOPHOSPHAMIDE FOR INJECTION 1000 MG + NS 500 ML
     Route: 041
     Dates: start: 20220222, end: 20220222
  2. SODIUM CHLORIDE [Suspect]
     Active Substance: SODIUM CHLORIDE
     Indication: Medication dilution
     Dosage: CYCLOPHOSPHAMIDE FOR INJECTION 1000 MG + NS 500 ML
     Route: 041
     Dates: start: 20220222, end: 20220222
  3. SODIUM CHLORIDE [Suspect]
     Active Substance: SODIUM CHLORIDE
     Dosage: RITUXIMAB INJECTION 100 MG + NS 100 ML
     Route: 041
     Dates: start: 20220221, end: 20220221
  4. SODIUM CHLORIDE [Suspect]
     Active Substance: SODIUM CHLORIDE
     Dosage: RITUXIMAB INJECTION 473 MG + NS 473 ML
     Route: 041
     Dates: start: 20220221, end: 20220221
  5. SODIUM CHLORIDE [Suspect]
     Active Substance: SODIUM CHLORIDE
     Dosage: DOXORUBICIN HYDROCHLORIDE FOR INJECTION 70 MG + NS 500 ML
     Route: 041
     Dates: start: 20220222, end: 20220222
  6. SODIUM CHLORIDE [Suspect]
     Active Substance: SODIUM CHLORIDE
     Dosage: VINCRISTINE SULFATE FOR INJECTION 2 MG + NS 20 ML
     Route: 042
     Dates: start: 20220222, end: 20220222
  7. RITUXIMAB [Suspect]
     Active Substance: RITUXIMAB
     Indication: Neoplasm malignant
     Dosage: RITUXIMAB INJECTION 100 MG + NS 100 ML
     Route: 041
     Dates: start: 20220221, end: 20220221
  8. RITUXIMAB [Suspect]
     Active Substance: RITUXIMAB
     Dosage: RITUXIMAB INJECTION 473 MG + NS 473 ML
     Route: 041
     Dates: start: 20220221, end: 20220221
  9. DOXORUBICIN HYDROCHLORIDE [Suspect]
     Active Substance: DOXORUBICIN HYDROCHLORIDE
     Indication: B-cell lymphoma
     Dosage: DOXORUBICIN HYDROCHLORIDE FOR INJECTION 70 MG + NS 500 ML
     Route: 041
     Dates: start: 20220222, end: 20220222
  10. VINCRISTINE SULFATE [Suspect]
     Active Substance: VINCRISTINE SULFATE
     Indication: B-cell lymphoma
     Dosage: VINCRISTINE SULFATE FOR INJECTION 2 MG + NS 20 ML
     Route: 042
     Dates: start: 20220222, end: 20220222
  11. human granulocyte stimulating factor [Concomitant]
     Indication: Granulocytopenia
     Route: 058
     Dates: start: 20220228
  12. LEUCOGEN [Concomitant]
     Active Substance: LEUCOGEN
     Indication: Granulocytopenia
     Route: 048
     Dates: start: 20220228

REACTIONS (1)
  - Myelosuppression [Recovering/Resolving]

NARRATIVE: CASE EVENT DATE: 20220303
